FAERS Safety Report 8298229 (Version 4)
Quarter: 2013Q4

REPORT INFORMATION
  Report Type: Report from Study
  Country: US (occurrence: US)
  Receive Date: 20111219
  Receipt Date: 20131112
  Transmission Date: 20140711
  Serious: Yes (Other)
  Sender: FDA-Public Use
  Company Number: US-ELI_LILLY_AND_COMPANY-US201110006235

PATIENT
  Sex: Female

DRUGS (2)
  1. TERIPARATIDE [Suspect]
     Indication: OSTEOPOROSIS
     Dosage: UNK
     Route: 065
  2. TERIPARATIDE [Suspect]
     Dosage: UNK, QD
     Route: 065

REACTIONS (7)
  - Cervical vertebral fracture [Unknown]
  - Localised infection [Not Recovered/Not Resolved]
  - Rheumatoid arthritis [Unknown]
  - Arthritis [Not Recovered/Not Resolved]
  - Stomatitis [Unknown]
  - Malaise [Unknown]
  - Pain [Unknown]
